FAERS Safety Report 24428669 (Version 2)
Quarter: 2024Q4

REPORT INFORMATION
  Report Type: Spontaneous
  Country: US (occurrence: US)
  Receive Date: 20241011
  Receipt Date: 20241018
  Transmission Date: 20250115
  Serious: Yes (Hospitalization)
  Sender: PFIZER
  Company Number: US-MLMSERVICE-20240925-PI207908-00132-1

PATIENT
  Age: 62 Year
  Sex: Male

DRUGS (4)
  1. EPINEPHRINE [Suspect]
     Active Substance: EPINEPHRINE
     Indication: Anaphylactic reaction
     Dosage: SINGLE DOSE OF 0.5 MG OF IM EPINEPHRINE
     Route: 030
  2. ALBUTEROL\IPRATROPIUM BROMIDE [Concomitant]
     Active Substance: ALBUTEROL\IPRATROPIUM BROMIDE
     Indication: Anaphylactic reaction
     Dosage: 0.5 MG-2.5 MG/3 ML NEBULIZED INHALATION
     Route: 055
  3. FAMOTIDINE [Concomitant]
     Active Substance: FAMOTIDINE
     Indication: Anaphylactic reaction
     Dosage: 20 MG
     Route: 042
  4. METHYLPREDNISOLONE [Concomitant]
     Active Substance: METHYLPREDNISOLONE
     Indication: Anaphylactic reaction
     Dosage: 125 MG
     Route: 042

REACTIONS (6)
  - Hemiparesis [Recovered/Resolved]
  - Dysarthria [Recovered/Resolved]
  - Upper motor neurone lesion [Recovered/Resolved]
  - Aphasia [Recovered/Resolved]
  - Cerebral vasoconstriction [Recovered/Resolved]
  - Neurologic neglect syndrome [Recovered/Resolved]
